FAERS Safety Report 10257132 (Version 1)
Quarter: 2014Q2

REPORT INFORMATION
  Report Type: Spontaneous
  Country: DE (occurrence: DE)
  Receive Date: 20140625
  Receipt Date: 20140625
  Transmission Date: 20141212
  Serious: Yes (Other)
  Sender: FDA-Public Use
  Company Number: DE-DRREDDYS-GER/GER/14/0041274

PATIENT
  Age: 32 Year
  Sex: Female
  Weight: 72 kg

DRUGS (6)
  1. CITALOPRAM [Suspect]
     Indication: DEPRESSION
     Dosage: 20 [MG/D ]
     Route: 048
     Dates: start: 20130502, end: 20140127
  2. OMEPRAZOLE [Suspect]
     Indication: GASTRITIS PROPHYLAXIS
     Route: 048
  3. LEVOTHYROXINE SODIUM [Suspect]
     Indication: HYPOTHYROIDISM
     Dosage: 100 [?G/D ]
     Route: 048
     Dates: start: 20130502, end: 20140127
  4. IBUPROFEN LYSINATE [Concomitant]
     Indication: HEADACHE
     Dosage: 500 [MG/D ]/ ON DEMAND
     Route: 048
  5. FOLIO FORTE [Concomitant]
     Indication: PROPHYLAXIS OF NEURAL TUBE DEFECT
     Dosage: 0.8 [MG/D ]
     Route: 048
     Dates: start: 20130502, end: 20140127
  6. RENNIE [Concomitant]
     Indication: DYSPEPSIA
     Route: 048
     Dates: start: 20130502, end: 20140127

REACTIONS (3)
  - HELLP syndrome [Recovered/Resolved]
  - Caesarean section [Unknown]
  - Exposure during pregnancy [Unknown]
